FAERS Safety Report 4994276-X (Version None)
Quarter: 2006Q1

REPORT INFORMATION
  Report Type: 
  Country: None (occurrence: None)
  Receive Date: 20060314
  Receipt Date: 20050609
  Transmission Date: 20060701
  Serious: Yes (Other)
  Sender: FDA-Public Use
  Company Number: 200512414BCC

PATIENT
  Sex: Female

DRUGS (2)
  1. ALEVE [Suspect]
     Indication: CHONDROPATHY
     Dosage: 660 MG, TOTAL DAILY, ORAL
     Route: 048
  2. ALEVE [Suspect]
     Indication: PAIN
     Dosage: 660 MG, TOTAL DAILY, ORAL
     Route: 048

REACTIONS (1)
  - RECTAL HAEMORRHAGE [None]
